FAERS Safety Report 5531827-0 (Version None)
Quarter: 2007Q4

REPORT INFORMATION
  Report Type: 
  Country: None (occurrence: None)
  Receive Date: 20071128
  Receipt Date: 20071128
  Transmission Date: 20080405
  Serious: Yes (Hospitalization)
  Sender: FDA-Public Use
  Company Number: None

PATIENT
  Age: 68 Year
  Sex: Male

DRUGS (4)
  1. WARFARIN SODIUM [Suspect]
     Indication: ATRIAL FIBRILLATION
     Dates: start: 20070529, end: 20070616
  2. WARFARIN SODIUM [Suspect]
     Indication: MITRAL VALVE DISEASE
     Dates: start: 20070529, end: 20070616
  3. ENOXAPARIN SODIUM [Suspect]
     Indication: ATRIAL FIBRILLATION
     Dosage: 120MG  BID  SQ
     Route: 058
     Dates: start: 20070614, end: 20070616
  4. ENOXAPARIN SODIUM [Suspect]
     Indication: MITRAL VALVE DISEASE
     Dosage: 120MG  BID  SQ
     Route: 058
     Dates: start: 20070614, end: 20070616

REACTIONS (1)
  - HAEMORRHAGE [None]
